FAERS Safety Report 20720473 (Version 1)
Quarter: 2022Q2

REPORT INFORMATION
  Report Type: Report from Study
  Country: US (occurrence: US)
  Receive Date: 20220418
  Receipt Date: 20220418
  Transmission Date: 20220720
  Serious: Yes (Other)
  Sender: FDA-Public Use
  Company Number: US-UPSHER-SMITH LABORATORIES, LLC-2022USL00255

PATIENT
  Sex: Male

DRUGS (2)
  1. VIGADRONE [Suspect]
     Active Substance: VIGABATRIN
     Indication: Infantile spasms
     Dosage: UNK
  2. VIGADRONE [Suspect]
     Active Substance: VIGABATRIN
     Dosage: UNK ^WEANING^

REACTIONS (1)
  - Infantile spasms [Not Recovered/Not Resolved]
